FAERS Safety Report 10175322 (Version 1)
Quarter: 2014Q2

REPORT INFORMATION
  Report Type: Spontaneous
  Country: US (occurrence: US)
  Receive Date: 20140515
  Receipt Date: 20140515
  Transmission Date: 20141212
  Serious: Yes (Hospitalization, Other)
  Sender: FDA-Public Use
  Company Number: US-GILEAD-2014-0102324

PATIENT
  Age: 54 Year
  Sex: Male

DRUGS (16)
  1. VIREAD [Suspect]
     Indication: HIV INFECTION
     Dosage: UNK
     Route: 048
     Dates: start: 200204, end: 201202
  2. EFAVIRENZ [Suspect]
     Indication: HIV INFECTION
     Dosage: UNK
     Route: 048
     Dates: start: 200204, end: 201202
  3. DIDANOSINE [Suspect]
     Indication: HIV INFECTION
     Dosage: UNK
     Route: 048
     Dates: start: 200204, end: 201202
  4. DARUNAVIR [Suspect]
     Indication: HIV INFECTION
     Dosage: UNK
     Route: 065
     Dates: start: 201202
  5. RITONAVIR [Suspect]
     Indication: HIV INFECTION
     Dosage: UNK
     Route: 065
     Dates: start: 201202
  6. ETRAVIRINE [Suspect]
     Indication: HIV INFECTION
     Dosage: UNK
     Route: 065
     Dates: start: 201202, end: 201401
  7. RALTEGRAVIR [Suspect]
     Indication: HIV INFECTION
     Dosage: UNK
     Route: 065
     Dates: start: 201202
  8. METHADONE [Concomitant]
  9. ONDANSETRON [Concomitant]
  10. METOPROLOL [Concomitant]
  11. LISINOPRIL [Concomitant]
  12. SIMVASTATIN [Concomitant]
  13. PRAVASTATIN [Concomitant]
  14. VENLAFAXINE [Concomitant]
  15. TRAZODONE [Concomitant]
  16. OMEPRAZOLE [Concomitant]

REACTIONS (6)
  - Osteoporosis [Unknown]
  - Ankle fracture [Unknown]
  - Renal failure [Recovering/Resolving]
  - Renal failure acute [Recovering/Resolving]
  - Renal tubular disorder [Recovering/Resolving]
  - Hypophosphataemia [Recovering/Resolving]
